FAERS Safety Report 5505095-X (Version None)
Quarter: 2007Q4

REPORT INFORMATION
  Report Type: 
  Country: None (occurrence: None)
  Receive Date: 20071102
  Receipt Date: 20071025
  Transmission Date: 20080405
  Serious: Yes (Life-Threatening, Hospitalization, Other)
  Sender: FDA-Public Use
  Company Number: CH-ASTRAZENECA-2005PK00179

PATIENT
  Age: 684 Month
  Sex: Female

DRUGS (11)
  1. IRESSA [Suspect]
     Indication: NEOPLASM MALIGNANT
     Route: 048
     Dates: start: 20050103, end: 20050126
  2. RADIATION THERAPY [Suspect]
     Indication: NEOPLASM MALIGNANT
     Dates: start: 20050101
  3. CISPLATIN [Suspect]
     Indication: NEOPLASM MALIGNANT
     Route: 042
     Dates: start: 20050101
  4. FRAGMIN [Concomitant]
     Indication: PROPHYLAXIS
     Dates: start: 20041018, end: 20041023
  5. FRAGMIN [Concomitant]
     Dates: start: 20041115, end: 20041121
  6. DAFALGAN [Concomitant]
     Indication: ANALGESIC THERAPY
     Dates: start: 20041115, end: 20041117
  7. SANGEROL [Concomitant]
     Indication: MUCOSAL INFLAMMATION
  8. LACRINORM [Concomitant]
     Indication: DRY EYE
  9. LIQUITEARS [Concomitant]
     Indication: DRY EYE
  10. DURAGESIC-100 [Concomitant]
     Indication: MUCOSAL INFLAMMATION
  11. MORPHINE [Concomitant]
     Indication: MUCOSAL INFLAMMATION

REACTIONS (3)
  - PNEUMONIA ASPIRATION [None]
  - PULMONARY EMBOLISM [None]
  - SEPSIS [None]
